FAERS Safety Report 23618570 (Version 1)
Quarter: 2024Q1

REPORT INFORMATION
  Report Type: Spontaneous
  Country: US (occurrence: US)
  Receive Date: 20240311
  Receipt Date: 20240311
  Transmission Date: 20240410
  Serious: No
  Sender: FDA-Public Use
  Company Number: US-PFIZER INC-202400059703

PATIENT
  Age: 61 Year
  Sex: Female

DRUGS (1)
  1. IBRANCE [Suspect]
     Active Substance: PALBOCICLIB
     Indication: Breast cancer female
     Dosage: ONE TABLET BY MOUTH ONCE DAILY FOR 21 DAYS THEN THEY TAKE 7 DAYS OFF
     Route: 048

REACTIONS (2)
  - Alopecia [Unknown]
  - Brain fog [Unknown]
